FAERS Safety Report 6638670-X (Version None)
Quarter: 2010Q1

REPORT INFORMATION
  Report Type: 
  Country: None (occurrence: None)
  Receive Date: 20100317
  Receipt Date: 20100308
  Transmission Date: 20100710
  Serious: Yes (Other)
  Sender: FDA-Public Use
  Company Number: RO-WYE-H12568009

PATIENT
  Sex: Male

DRUGS (3)
  1. AMIODARONE HCL [Suspect]
     Dosage: UNSPECIFIED
     Dates: start: 20090604, end: 20091012
  2. METOPROLOL TARTRATE [Concomitant]
     Dosage: UNSPECIFIED
     Route: 048
     Dates: start: 20090604
  3. WARFARIN SODIUM [Concomitant]
     Indication: THROMBOSIS PROPHYLAXIS
     Route: 048
     Dates: start: 20090625

REACTIONS (2)
  - ATRIAL FLUTTER [None]
  - HYPOTHYROIDISM [None]
